FAERS Safety Report 17294785 (Version 1)
Quarter: 2020Q1

REPORT INFORMATION
  Report Type: Spontaneous
  Country: US (occurrence: US)
  Receive Date: 20200121
  Receipt Date: 20200121
  Transmission Date: 20200409
  Serious: Yes (Hospitalization)
  Sender: FDA-Public Use
  Company Number: US-WALMART-2079243

PATIENT
  Age: 50 Year
  Sex: Female
  Weight: 45.46 kg

DRUGS (1)
  1. NIGHTTIME SLEEP AID MAXIMUM STRENGTH [Suspect]
     Active Substance: DIPHENHYDRAMINE HYDROCHLORIDE
     Indication: PRODUCT USED FOR UNKNOWN INDICATION
     Route: 048
     Dates: start: 20200104

REACTIONS (1)
  - Seizure [Unknown]
